FAERS Safety Report 21393556 (Version 5)
Quarter: 2023Q2

REPORT INFORMATION
  Report Type: Report from Study
  Country: US (occurrence: US)
  Receive Date: 20220929
  Receipt Date: 20230418
  Transmission Date: 20230722
  Serious: Yes (Hospitalization, Other)
  Sender: FDA-Public Use
  Company Number: US-ABBVIE-4130169

PATIENT
  Age: 62 Year
  Sex: Male

DRUGS (5)
  1. IMBRUVICA [Suspect]
     Active Substance: IBRUTINIB
     Indication: B-cell lymphoma
     Dosage: LAST ADMIN DATE AUG 2022
     Route: 048
     Dates: start: 20220827
  2. IMBRUVICA [Suspect]
     Active Substance: IBRUTINIB
     Indication: B-cell lymphoma
     Route: 048
     Dates: start: 20221018
  3. IMBRUVICA [Suspect]
     Active Substance: IBRUTINIB
     Indication: B-cell lymphoma
     Route: 048
     Dates: start: 202208, end: 202208
  4. IMBRUVICA [Suspect]
     Active Substance: IBRUTINIB
     Indication: B-cell lymphoma
     Dosage: LAST ADMIN DATE 2022
     Route: 048
     Dates: start: 20220828
  5. IMBRUVICA [Suspect]
     Active Substance: IBRUTINIB
     Indication: B-cell lymphoma
     Route: 048
     Dates: start: 20230319, end: 20230410

REACTIONS (24)
  - Ocular lymphoma [Unknown]
  - Decreased appetite [Unknown]
  - Depression [Unknown]
  - Renal function test abnormal [Unknown]
  - Fatigue [Unknown]
  - Dehydration [Unknown]
  - Confusional state [Unknown]
  - Sleep disorder [Unknown]
  - Dyspnoea [Unknown]
  - Syncope [Unknown]
  - Taste disorder [Unknown]
  - Blindness unilateral [Unknown]
  - Blood pressure decreased [Unknown]
  - Pyrexia [Unknown]
  - Nausea [Unknown]
  - Viral infection [Unknown]
  - Epistaxis [Unknown]
  - Blood pressure decreased [Unknown]
  - Adrenal insufficiency [Unknown]
  - Central venous catheterisation [Unknown]
  - Fall [Unknown]
  - White blood cell count increased [Unknown]
  - Hospitalisation [Unknown]
  - Anxiety [Unknown]

NARRATIVE: CASE EVENT DATE: 20221018
